FAERS Safety Report 17768085 (Version 2)
Quarter: 2020Q2

REPORT INFORMATION
  Report Type: Spontaneous
  Country: US (occurrence: US)
  Receive Date: 20200511
  Receipt Date: 20200514
  Transmission Date: 20200714
  Serious: No
  Sender: FDA-Public Use
  Company Number: NVSC2020US125749

PATIENT
  Age: 9 Year
  Sex: Male

DRUGS (1)
  1. PATADAY [Suspect]
     Active Substance: OLOPATADINE HYDROCHLORIDE
     Indication: PRODUCT USED FOR UNKNOWN INDICATION
     Dosage: UNK UNK, QD
     Route: 065
     Dates: start: 20200419, end: 20200420

REACTIONS (3)
  - Periorbital swelling [Recovered/Resolved]
  - Hypersensitivity [Unknown]
  - Ocular hyperaemia [Recovered/Resolved]
